FAERS Safety Report 8163276-3 (Version None)
Quarter: 2012Q1

REPORT INFORMATION
  Report Type: 
  Country: None (occurrence: None)
  Receive Date: 20120224
  Receipt Date: 20110721
  Transmission Date: 20120608
  Serious: No
  Sender: FDA-Public Use
  Company Number: US-PFIZER INC-K201100874

PATIENT
  Sex: Male
  Weight: 72.109 kg

DRUGS (3)
  1. FLECTOR [Suspect]
     Indication: BACK PAIN
     Dosage: 1 PATCH, QD
     Route: 061
     Dates: start: 20110101, end: 20110101
  2. FLECTOR [Suspect]
     Dosage: 2 PATCH, BID
     Route: 061
     Dates: start: 20110701, end: 20110701
  3. FLECTOR [Suspect]
     Dosage: 1 PATCH, QD
     Route: 061
     Dates: start: 20110701

REACTIONS (1)
  - DYSURIA [None]
